FAERS Safety Report 14062546 (Version 1)
Quarter: 2017Q4

REPORT INFORMATION
  Report Type: Spontaneous
  Country: US (occurrence: US)
  Receive Date: 20171009
  Receipt Date: 20171009
  Transmission Date: 20180321
  Serious: No
  Sender: FDA-Public Use
  Company Number: US-PFIZER INC-2017427848

PATIENT
  Sex: Female

DRUGS (1)
  1. ADVIL [Suspect]
     Active Substance: IBUPROFEN
     Indication: TENSION HEADACHE
     Dosage: 2 DF, 1X/DAY [TOOK 2 ADVIL LIQUIGELS AT 4:30AM THIS MORNING]

REACTIONS (1)
  - Drug ineffective [Unknown]
